FAERS Safety Report 9801071 (Version 1)
Quarter: 2014Q1

REPORT INFORMATION
  Report Type: Spontaneous
  Country: GB (occurrence: GB)
  Receive Date: 20140107
  Receipt Date: 20140107
  Transmission Date: 20141002
  Serious: Yes (Hospitalization, Other)
  Sender: FDA-Public Use
  Company Number: GB-ELI_LILLY_AND_COMPANY-GB201401000528

PATIENT
  Sex: Female

DRUGS (3)
  1. CIALIS [Suspect]
     Indication: ARTERIOSPASM CORONARY
     Dosage: UNK, QD
     Route: 048
     Dates: start: 2010
  2. ASPIRIN [Concomitant]
     Indication: PRODUCT USED FOR UNKNOWN INDICATION
     Dosage: 1 DF, UNKNOWN
     Route: 065
  3. LANSOPRAZOLE [Concomitant]
     Indication: PRODUCT USED FOR UNKNOWN INDICATION
     Dosage: 1 DF, UNKNOWN
     Route: 065

REACTIONS (6)
  - Blindness [Not Recovered/Not Resolved]
  - Blindness [Recovered/Resolved]
  - Vision blurred [Recovered/Resolved]
  - Cerebrovascular accident [Unknown]
  - Chest pain [Not Recovered/Not Resolved]
  - Off label use [Not Recovered/Not Resolved]
